FAERS Safety Report 5224685-5 (Version None)
Quarter: 2007Q1

REPORT INFORMATION
  Report Type: 
  Country: None (occurrence: None)
  Receive Date: 20070129
  Receipt Date: 20070129
  Transmission Date: 20070707
  Serious: Yes (Hospitalization)
  Sender: FDA-Public Use
  Company Number: None

PATIENT
  Age: 69 Year
  Sex: Male
  Weight: 89.8576 kg

DRUGS (1)
  1. ENOXAPARIN SODIUM [Suspect]
     Indication: AORTIC VALVE REPLACEMENT
     Dosage: 100 MG BID SQ
     Route: 058
     Dates: start: 20061126, end: 20061207

REACTIONS (12)
  - ANIMAL SCRATCH [None]
  - BLOOD PRESSURE DIASTOLIC DECREASED [None]
  - COAGULOPATHY [None]
  - CONTUSION [None]
  - HAEMATOMA [None]
  - INFECTION [None]
  - INTERNATIONAL NORMALISED RATIO DECREASED [None]
  - OEDEMA PERIPHERAL [None]
  - PAIN IN EXTREMITY [None]
  - RENAL IMPAIRMENT [None]
  - RESPIRATORY RATE DECREASED [None]
  - SENSORY DISTURBANCE [None]
